FAERS Safety Report 8584687 (Version 4)
Quarter: 2012Q4

REPORT INFORMATION
  Report Type: Report from Study
  Country: US (occurrence: US)
  Receive Date: 20120529
  Receipt Date: 20121115
  Transmission Date: 20130627
  Serious: Yes (Hospitalization, Other)
  Sender: FDA-Public Use
  Company Number: US-JNJFOC-20120516742

PATIENT
  Age: 13 Year
  Sex: Female
  Weight: 31.3 kg

DRUGS (7)
  1. REMICADE [Suspect]
     Indication: CROHN^S DISEASE
     Route: 042
     Dates: start: 20091030, end: 20100527
  2. 6-MERCAPTOPURINE [Suspect]
     Indication: PRODUCT USED FOR UNKNOWN INDICATION
  3. IMIPRAMINE [Concomitant]
  4. PROZAC [Concomitant]
  5. 5-ASA [Concomitant]
  6. CALCIUM [Concomitant]
  7. MULTIVITAMINS [Concomitant]

REACTIONS (3)
  - Clostridium difficile infection [Recovered/Resolved]
  - Crohn^s disease [Recovered/Resolved]
  - Malnutrition [Recovered/Resolved]
